FAERS Safety Report 9086564 (Version 6)
Quarter: 2013Q3

REPORT INFORMATION
  Report Type: Spontaneous
  Country: US (occurrence: US)
  Receive Date: 20130131
  Receipt Date: 20130705
  Transmission Date: 20140515
  Serious: Yes (Other)
  Sender: FDA-Public Use
  Company Number: US-PFIZER INC-2013038723

PATIENT
  Age: 44 Year
  Sex: Female
  Weight: 98.87 kg

DRUGS (3)
  1. LYRICA [Suspect]
     Indication: FIBROMYALGIA
     Dosage: 50 MG, UNK
     Route: 048
  2. LYRICA [Suspect]
     Dosage: 75 MG, UNK
     Route: 048
  3. ADVAIR DISKUS [Concomitant]
     Indication: ASTHMA
     Dosage: 250/50 MCG AS TWO PUFFS, 2X/DAY

REACTIONS (6)
  - Bunion [Recovering/Resolving]
  - Foot deformity [Recovering/Resolving]
  - Blood magnesium decreased [Unknown]
  - Blood calcium decreased [Unknown]
  - Pain [Not Recovered/Not Resolved]
  - Drug ineffective [Unknown]
